FAERS Safety Report 17999554 (Version 1)
Quarter: 2020Q3

REPORT INFORMATION
  Report Type: Report from Study
  Country: US (occurrence: US)
  Receive Date: 20200709
  Receipt Date: 20200709
  Transmission Date: 20201103
  Serious: Yes (Other)
  Sender: FDA-Public Use
  Company Number: US-ACTELION-A-US2020-206878

PATIENT
  Age: 61 Year
  Sex: Female

DRUGS (14)
  1. ALLOPURINOL. [Concomitant]
     Active Substance: ALLOPURINOL
  2. SILDENAFIL. [Concomitant]
     Active Substance: SILDENAFIL
  3. TREPROSTINIL. [Concomitant]
     Active Substance: TREPROSTINIL
  4. LOPERAMIDE [Concomitant]
     Active Substance: LOPERAMIDE
  5. SPIRONOLACTONE. [Concomitant]
     Active Substance: SPIRONOLACTONE
  6. SIMVASTATIN. [Concomitant]
     Active Substance: SIMVASTATIN
  7. GABAPENTIN. [Concomitant]
     Active Substance: GABAPENTIN
  8. BUSIRONE [Concomitant]
  9. POTASSIUM CHLORIDE. [Concomitant]
     Active Substance: POTASSIUM CHLORIDE
  10. NORTRIPTYLINE [Concomitant]
     Active Substance: NORTRIPTYLINE
  11. OPSUMIT [Suspect]
     Active Substance: MACITENTAN
     Indication: PULMONARY ARTERIAL HYPERTENSION
     Dosage: 10 MG, QD
     Route: 048
     Dates: start: 201905
  12. FAMOTIDINE. [Concomitant]
     Active Substance: FAMOTIDINE
  13. TYLENOL [Concomitant]
     Active Substance: ACETAMINOPHEN
  14. FUROSEMIDE. [Concomitant]
     Active Substance: FUROSEMIDE

REACTIONS (2)
  - Pulmonary oedema [Recovering/Resolving]
  - Chest pain [Recovering/Resolving]

NARRATIVE: CASE EVENT DATE: 20200624
